FAERS Safety Report 13792777 (Version 1)
Quarter: 2017Q3

REPORT INFORMATION
  Report Type: Spontaneous
  Country: US (occurrence: US)
  Receive Date: 20170725
  Receipt Date: 20170725
  Transmission Date: 20171127
  Serious: Yes (Hospitalization, Disabling)
  Sender: FDA-Public Use
  Company Number: None

PATIENT
  Age: 38 Year
  Sex: Female
  Weight: 68.1 kg

DRUGS (1)
  1. MUPIROCIN OINTMENT [Suspect]
     Active Substance: MUPIROCIN
     Dosage: 2% APPLY TO SKIN 1 A DAY, ON SKIN (FACE)
     Dates: start: 20170131, end: 20170301

REACTIONS (13)
  - Pruritus [None]
  - Oral discomfort [None]
  - Skin irritation [None]
  - Stomatitis [None]
  - Blister [None]
  - Skin discolouration [None]
  - Malaise [None]
  - Gastrooesophageal reflux disease [None]
  - Nausea [None]
  - Scar [None]
  - Fall [None]
  - Skin burning sensation [None]
  - Abdominal pain [None]

NARRATIVE: CASE EVENT DATE: 20170417
